FAERS Safety Report 16932189 (Version 1)
Quarter: 2019Q4

REPORT INFORMATION
  Report Type: Report from Study
  Country: US (occurrence: US)
  Receive Date: 20191017
  Receipt Date: 20191017
  Transmission Date: 20200122
  Serious: Yes (Other)
  Sender: FDA-Public Use
  Company Number: US-JNJFOC-20191012757

PATIENT

DRUGS (3)
  1. REMICADE [Suspect]
     Active Substance: INFLIXIMAB
     Indication: TRANSPLANT REJECTION
  2. REMICADE [Suspect]
     Active Substance: INFLIXIMAB
     Indication: TRANSPLANT REJECTION
  3. REMICADE [Suspect]
     Active Substance: INFLIXIMAB
     Indication: MUCOSAL INFLAMMATION
     Dosage: 6 TO 8 WEEKS
     Route: 042

REACTIONS (4)
  - Off label use [Unknown]
  - Post transplant lymphoproliferative disorder [Unknown]
  - Infusion related reaction [Unknown]
  - Drug ineffective for unapproved indication [Unknown]
